FAERS Safety Report 6048158-5 (Version None)
Quarter: 2009Q1

REPORT INFORMATION
  Report Type: 
  Country: None (occurrence: None)
  Receive Date: 20090123
  Receipt Date: 20090114
  Transmission Date: 20090719
  Serious: Yes (Hospitalization)
  Sender: FDA-Public Use
  Company Number: US-BIOGENIDEC-2008BI015946

PATIENT
  Age: 41 Year
  Sex: Female

DRUGS (1)
  1. TYSABRI [Suspect]
     Indication: MULTIPLE SCLEROSIS
     Route: 042
     Dates: start: 20071105

REACTIONS (5)
  - INFECTION [None]
  - PAIN [None]
  - POST PROCEDURAL COMPLICATION [None]
  - SEASONAL ALLERGY [None]
  - SPINAL FUSION SURGERY [None]
